FAERS Safety Report 19129402 (Version 1)
Quarter: 2021Q2

REPORT INFORMATION
  Report Type: Spontaneous
  Country: GB (occurrence: GB)
  Receive Date: 20210413
  Receipt Date: 20210413
  Transmission Date: 20210717
  Serious: Yes (Hospitalization, Other)
  Sender: FDA-Public Use
  Company Number: GB-CASPER PHARMA LLC-2021CAS000193

PATIENT
  Age: 58 Year
  Sex: Male

DRUGS (2)
  1. AZATHIOPRINE. [Suspect]
     Active Substance: AZATHIOPRINE
     Indication: RHEUMATOID ARTHRITIS
     Dosage: 50 MILLIGRAM, BID
     Route: 048
  2. KETOPROFEN. [Concomitant]
     Active Substance: KETOPROFEN
     Indication: RHEUMATOID ARTHRITIS
     Dosage: 200 MILLIGRAM, QD
     Route: 065

REACTIONS (2)
  - Hepatic necrosis [Recovered/Resolved]
  - Drug hypersensitivity [Recovered/Resolved]
